FAERS Safety Report 8791388 (Version 2)
Quarter: 2013Q1

REPORT INFORMATION
  Report Type: Spontaneous
  Country: US (occurrence: None)
  Receive Date: 20120912
  Receipt Date: 20121113
  Transmission Date: 20140127
  Serious: Yes (Hospitalization)
  Sender: FDA-Public Use
  Company Number: AUR-APL-2012-03914

PATIENT
  Age: 34 Year
  Sex: Male

DRUGS (4)
  1. VALACYCLOVIR [Suspect]
     Indication: PRODUCT USED FOR UNKNOWN INDICATION
  2. TEMAZEPAM [Suspect]
     Indication: PRODUCT USED FOR UNKNOWN INDICATION
  3. DALFAMPRIDINE [Suspect]
     Indication: MULTIPLE SCLEROSIS
  4. TYSABRI (NATALIZUMAB) [Concomitant]

REACTIONS (12)
  - Convulsion [None]
  - Blood pressure systolic increased [None]
  - Hyperhidrosis [None]
  - Respiratory rate increased [None]
  - Tremor [None]
  - Tachycardia [None]
  - Blood glucose increased [None]
  - Loss of consciousness [None]
  - White blood cell count increased [None]
  - Toxicologic test abnormal [None]
  - Overdose [None]
  - No therapeutic response [None]
